FAERS Safety Report 16912491 (Version 1)
Quarter: 2019Q4

REPORT INFORMATION
  Report Type: Spontaneous
  Country: US (occurrence: US)
  Receive Date: 20190821
  Receipt Date: 20190821
  Transmission Date: 20200122
  Serious: No
  Sender: FDA-Public Use
  Company Number: None

PATIENT
  Age: 64 Year
  Sex: Female

DRUGS (1)
  1. MEKINIST [Suspect]
     Active Substance: TRAMETINIB DIMETHYL SULFOXIDE
     Route: 048
     Dates: start: 201709

REACTIONS (4)
  - Pyrexia [None]
  - Sinonasal obstruction [None]
  - Infection [None]
  - Sinus congestion [None]

NARRATIVE: CASE EVENT DATE: 20190821
